FAERS Safety Report 25476084 (Version 1)
Quarter: 2025Q2

REPORT INFORMATION
  Report Type: Spontaneous
  Country: CN (occurrence: CN)
  Receive Date: 20250625
  Receipt Date: 20250625
  Transmission Date: 20250716
  Serious: Yes (Death, Hospitalization, Other)
  Sender: AMGEN
  Company Number: CN-AMGEN-CHNSP2025121089

PATIENT
  Age: 57 Year
  Sex: Male

DRUGS (5)
  1. XGEVA [Suspect]
     Active Substance: DENOSUMAB
     Indication: Metastases to bone
     Dosage: 120 MILLIGRAM, QMO
     Route: 058
  2. XGEVA [Suspect]
     Active Substance: DENOSUMAB
     Indication: Metastases to bone
  3. PEMBROLIZUMAB [Concomitant]
     Active Substance: PEMBROLIZUMAB
     Indication: Metastases to bone
     Route: 065
  4. DABRAFENIB [Concomitant]
     Active Substance: DABRAFENIB
     Indication: Metastases to bone
     Route: 065
  5. TRAMETINIB [Concomitant]
     Active Substance: TRAMETINIB
     Route: 065

REACTIONS (3)
  - Death [Fatal]
  - Thrombocytopenia [Unknown]
  - Metastases to bone [Unknown]
